FAERS Safety Report 24100410 (Version 2)
Quarter: 2024Q3

REPORT INFORMATION
  Report Type: Spontaneous
  Country: US (occurrence: US)
  Receive Date: 20240717
  Receipt Date: 20240723
  Transmission Date: 20241017
  Serious: Yes (Other)
  Sender: JOHNSON AND JOHNSON
  Company Number: US-JNJFOC-20240721534

PATIENT
  Age: 12 Year
  Sex: Female

DRUGS (6)
  1. ACETAMINOPHEN [Suspect]
     Active Substance: ACETAMINOPHEN
     Indication: Pain management
     Dosage: ACETAMINOPHEN ADMINISTRATION EVERY 46 H WITH AN AVERAGE DOSING OF 48.5 MG/KG/DAY OVER THE 8 DAYS OF
     Route: 065
  2. METRONIDAZOLE [Suspect]
     Active Substance: METRONIDAZOLE
     Indication: Product used for unknown indication
     Route: 065
  3. HYDROCODONE [Suspect]
     Active Substance: HYDROCODONE
     Indication: Pain management
     Route: 065
  4. CEFEPIME [Suspect]
     Active Substance: CEFEPIME HYDROCHLORIDE
     Indication: Product used for unknown indication
     Route: 065
  5. VANCOMYCIN [Suspect]
     Active Substance: VANCOMYCIN
     Indication: Product used for unknown indication
     Route: 065
  6. MEROPENEM [Suspect]
     Active Substance: MEROPENEM
     Indication: Product used for unknown indication
     Route: 065

REACTIONS (1)
  - Pyroglutamic acidosis [Recovering/Resolving]
